FAERS Safety Report 25124349 (Version 2)
Quarter: 2025Q2

REPORT INFORMATION
  Report Type: Spontaneous
  Country: US (occurrence: US)
  Receive Date: 20250326
  Receipt Date: 20250429
  Transmission Date: 20250716
  Serious: No
  Sender: PFIZER
  Company Number: US-PFIZER INC-202500064040

PATIENT
  Age: 70 Year
  Sex: Female
  Weight: 47.63 kg

DRUGS (3)
  1. PREMARIN [Suspect]
     Active Substance: ESTROGENS, CONJUGATED
     Indication: Hormone replacement therapy
     Dates: end: 20250318
  2. LOSARTAN [Concomitant]
     Active Substance: LOSARTAN
     Indication: Hypertension
  3. LOSARTAN [Concomitant]
     Active Substance: LOSARTAN
     Dosage: 75 MG, DAILY; 50 MG TABLET, TAKES 1 AND HALF TABLETS
     Dates: start: 2016

REACTIONS (6)
  - Breast tenderness [Recovered/Resolved]
  - Nipple pain [Recovering/Resolving]
  - Hot flush [Unknown]
  - Night sweats [Recovering/Resolving]
  - Middle insomnia [Unknown]
  - Off label use [Unknown]
